FAERS Safety Report 9426452 (Version 2)
Quarter: 2013Q3

REPORT INFORMATION
  Report Type: Spontaneous
  Country: AT (occurrence: AT)
  Receive Date: 20130730
  Receipt Date: 20130917
  Transmission Date: 20140515
  Serious: Yes (Life-Threatening)
  Sender: FDA-Public Use
  Company Number: AT-B.I. PHARMACEUTICALS,INC./RIDGEFIELD-2013-AP-00598AP

PATIENT
  Age: 89 Year
  Sex: Female
  Weight: 55 kg

DRUGS (3)
  1. PRADAXA [Suspect]
     Indication: ATRIAL FIBRILLATION
     Dosage: 220 MG
     Dates: end: 201307
  2. AQUAPHORIL [Concomitant]
  3. CONCOR [Concomitant]

REACTIONS (4)
  - Erysipelas [Recovered/Resolved]
  - Red blood cell agglutination [Recovered/Resolved]
  - Haemorrhagic anaemia [Recovered/Resolved]
  - Blood grouping [Recovered/Resolved]
